FAERS Safety Report 6173529-6 (Version None)
Quarter: 2009Q2

REPORT INFORMATION
  Report Type: 
  Country: None (occurrence: None)
  Receive Date: 20090429
  Receipt Date: 20090429
  Transmission Date: 20091009
  Serious: Yes (Other)
  Sender: FDA-Public Use
  Company Number: None

PATIENT
  Sex: Female
  Weight: 80.2867 kg

DRUGS (1)
  1. JANUVIA [Suspect]
     Indication: BLOOD GLUCOSE INCREASED
     Dosage: 1 TABLET ONCE A DAY
     Dates: start: 20090310, end: 20090402

REACTIONS (6)
  - ARTHRALGIA [None]
  - GAIT DISTURBANCE [None]
  - HEADACHE [None]
  - MUSCULOSKELETAL PAIN [None]
  - NECK PAIN [None]
  - PAIN IN EXTREMITY [None]
